FAERS Safety Report 4556589-5 (Version None)
Quarter: 2005Q1

REPORT INFORMATION
  Report Type: 
  Country: None (occurrence: None)
  Receive Date: 20050114
  Receipt Date: 20050107
  Transmission Date: 20050727
  Serious: Yes (Death)
  Sender: FDA-Public Use
  Company Number: FRWYE323907JAN05

PATIENT
  Age: 90 Year
  Sex: Female

DRUGS (10)
  1. EFFEXOR LIP (VENLAFAXINE HYDROCHLORIDE, CAPSULE, EXTENDED RELEASE, 0) [Suspect]
     Dosage: 37.5 MG 1X PER 1 DAY ORAL
     Route: 048
     Dates: end: 20041031
  2. OMEPRAZOLE [Suspect]
     Dosage: 20 MG 1X PER 1 DAY ORAL
     Route: 048
     Dates: start: 20041031, end: 20041103
  3. OFLOXACIN [Suspect]
     Dosage: 200 MG 1X PER 1 DAY INTRAVENOUS
     Route: 042
     Dates: start: 20041031, end: 20041110
  4. PERFALGAN (PARACETAMOL, , 0) [Suspect]
     Dosage: INTRAVENOUS
     Route: 042
     Dates: start: 20041031, end: 20041101
  5. PREVISCAN (FLUINDIONE, , 0) [Suspect]
     Dosage: 5 MG 1X PER 1 DAY ORAL
     Route: 048
     Dates: start: 20041007, end: 20041102
  6. SOLU-MEDROL [Suspect]
     Dosage: 40 MG 1X PER 1 DAY INTRAVENOUS
     Route: 042
     Dates: start: 20041031, end: 20041103
  7. LORAZEPAM [Concomitant]
  8. ASPEGIC 1000 [Concomitant]
  9. TIAPRIDAL (TIAPRIDE) [Concomitant]
  10. NITROGLYCERIN [Concomitant]

REACTIONS (11)
  - BLOOD PRESSURE SYSTOLIC DECREASED [None]
  - BRONCHIAL INFECTION [None]
  - DEEP VEIN THROMBOSIS [None]
  - DEHYDRATION [None]
  - DRUG INTERACTION [None]
  - FEMUR FRACTURE [None]
  - GASTROINTESTINAL HAEMORRHAGE [None]
  - INTERNATIONAL NORMALISED RATIO INCREASED [None]
  - PULMONARY EMBOLISM [None]
  - PULMONARY OEDEMA [None]
  - RESPIRATORY DISTRESS [None]
